FAERS Safety Report 7434400-2 (Version None)
Quarter: 2011Q2

REPORT INFORMATION
  Report Type: 
  Country: None (occurrence: None)
  Receive Date: 20110425
  Receipt Date: 20110418
  Transmission Date: 20111010
  Serious: Yes (Life-Threatening, Hospitalization)
  Sender: FDA-Public Use
  Company Number: PHHY2011US32844

PATIENT
  Sex: Female

DRUGS (1)
  1. VIVELLE-DOT [Suspect]
     Dosage: 0.02 MG TWICE PER WEEK
     Route: 062

REACTIONS (5)
  - PULMONARY EMBOLISM [None]
  - DYSPNOEA [None]
  - CHEST PAIN [None]
  - DEEP VEIN THROMBOSIS [None]
  - FEELING ABNORMAL [None]
